FAERS Safety Report 23818154 (Version 2)
Quarter: 2024Q2

REPORT INFORMATION
  Report Type: Spontaneous
  Country: US (occurrence: US)
  Receive Date: 20240506
  Receipt Date: 20240620
  Transmission Date: 20240715
  Serious: Yes (Other)
  Sender: FDA-Public Use
  Company Number: US-AUROBINDO-AUR-APL-2024-020794

PATIENT
  Age: 18 Year
  Sex: Male

DRUGS (9)
  1. ARIPIPRAZOLE [Suspect]
     Active Substance: ARIPIPRAZOLE
     Indication: Schizophrenia
     Dosage: 25 MILLIGRAM
     Route: 065
  2. ARIPIPRAZOLE [Suspect]
     Active Substance: ARIPIPRAZOLE
     Indication: Autism spectrum disorder
  3. RISPERIDONE [Suspect]
     Active Substance: RISPERIDONE
     Indication: Schizophrenia
     Dosage: 25 MILLIGRAM
     Route: 065
  4. RISPERIDONE [Suspect]
     Active Substance: RISPERIDONE
     Indication: Autism spectrum disorder
  5. NALTREXONE [Suspect]
     Active Substance: NALTREXONE
     Indication: Schizophrenia
     Dosage: 25 MILLIGRAM
     Route: 065
  6. NALTREXONE [Suspect]
     Active Substance: NALTREXONE
     Indication: Autism spectrum disorder
  7. OLANZAPINE\SAMIDORPHAN [Concomitant]
     Active Substance: OLANZAPINE\SAMIDORPHAN
     Indication: Schizophrenia
     Dosage: UNK
     Route: 065
  8. OLANZAPINE\SAMIDORPHAN [Concomitant]
     Active Substance: OLANZAPINE\SAMIDORPHAN
     Indication: Autism spectrum disorder
     Dosage: UNK (LOWERED TO A HALF TABLET TO ALLEVIATE NAUSEA FROM SAMIDORPHAN)
     Route: 065
  9. OLANZAPINE\SAMIDORPHAN [Concomitant]
     Active Substance: OLANZAPINE\SAMIDORPHAN
     Indication: Weight increased

REACTIONS (3)
  - Weight increased [Recovered/Resolved]
  - Drug ineffective [Unknown]
  - Gynaecomastia [Unknown]
